FAERS Safety Report 24413002 (Version 1)
Quarter: 2024Q4

REPORT INFORMATION
  Report Type: Spontaneous
  Country: CN (occurrence: CN)
  Receive Date: 20241008
  Receipt Date: 20241008
  Transmission Date: 20250114
  Serious: Yes (Life-Threatening, Hospitalization, Other)
  Sender: BEIGENE
  Company Number: CN-BEIGENE-BGN-2024-015852

PATIENT

DRUGS (13)
  1. TISLELIZUMAB [Suspect]
     Active Substance: TISLELIZUMAB
     Indication: Oesophageal squamous cell carcinoma
     Dosage: 200 MILLIGRAM, Q3WK
     Route: 041
     Dates: start: 20240403
  2. TISLELIZUMAB [Suspect]
     Active Substance: TISLELIZUMAB
     Dosage: 200 MILLIGRAM
     Route: 041
     Dates: start: 20240905
  3. CISPLATIN [Suspect]
     Active Substance: CISPLATIN
     Indication: Oesophageal squamous cell carcinoma
     Dosage: 100 MILLIGRAM, Q3WK
     Route: 041
     Dates: start: 20240403
  4. CISPLATIN [Suspect]
     Active Substance: CISPLATIN
     Dosage: 100 MILLIGRAM, Q3WK
     Route: 041
     Dates: start: 20240425
  5. CISPLATIN [Suspect]
     Active Substance: CISPLATIN
     Dosage: 40 MILLIGRAM
     Route: 041
     Dates: start: 20240906, end: 20240907
  6. CISPLATIN [Suspect]
     Active Substance: CISPLATIN
     Dosage: 30 MILLIGRAM
     Route: 041
     Dates: start: 20240908
  7. DOCETAXEL [Suspect]
     Active Substance: DOCETAXEL
     Indication: Oesophageal squamous cell carcinoma
     Dosage: 100 MILLIGRAM, Q3WK
     Route: 041
     Dates: start: 20240403
  8. DOCETAXEL [Suspect]
     Active Substance: DOCETAXEL
     Dosage: 100 MILLIGRAM, Q3WK
     Route: 041
     Dates: start: 20240425
  9. DOCETAXEL [Suspect]
     Active Substance: DOCETAXEL
     Dosage: 110 MILLIGRAM
     Route: 041
     Dates: start: 20240906
  10. SINTILIMAB [Concomitant]
     Active Substance: SINTILIMAB
     Indication: Oesophageal squamous cell carcinoma
     Dosage: 200 MILLIGRAM
     Route: 041
     Dates: start: 20240425
  11. SODIUM CHLORIDE [Concomitant]
     Active Substance: SODIUM CHLORIDE
     Indication: Vehicle solution use
     Dosage: 100 MILLILITER
     Route: 041
     Dates: start: 20240905
  12. SODIUM CHLORIDE [Concomitant]
     Active Substance: SODIUM CHLORIDE
     Dosage: 250 MILLILITER
     Route: 041
     Dates: start: 20240906, end: 20240908
  13. DEXTROSE [Concomitant]
     Active Substance: DEXTROSE MONOHYDRATE
     Indication: Vehicle solution use
     Dosage: 250 MILLILITER
     Route: 041
     Dates: start: 20240906, end: 20240906

REACTIONS (2)
  - Myelosuppression [Unknown]
  - Diarrhoea [Unknown]

NARRATIVE: CASE EVENT DATE: 20240909
